FAERS Safety Report 7932070-8 (Version None)
Quarter: 2011Q4

REPORT INFORMATION
  Report Type: 
  Country: None (occurrence: None)
  Receive Date: 20111121
  Receipt Date: 20111109
  Transmission Date: 20120403
  Serious: Yes (Life-Threatening, Hospitalization)
  Sender: FDA-Public Use
  Company Number: CN-NOVOPROD-339017

PATIENT

DRUGS (2)
  1. NOVOLIN 50R [Suspect]
     Indication: TYPE 2 DIABETES MELLITUS
     Dosage: 8 IU, BID
     Route: 058
  2. NOVOLIN N [Suspect]
     Indication: TYPE 2 DIABETES MELLITUS
     Dosage: 10 IU ONCE BEFORE BEDTIME
     Route: 058

REACTIONS (4)
  - INFECTION [None]
  - HYPOKALAEMIA [None]
  - INTENTIONAL OVERDOSE [None]
  - HYPOGLYCAEMIC COMA [None]
